FAERS Safety Report 6733690-9 (Version None)
Quarter: 2010Q2

REPORT INFORMATION
  Report Type: 
  Country: None (occurrence: None)
  Receive Date: 20100520
  Receipt Date: 20100510
  Transmission Date: 20101027
  Serious: Yes (Other)
  Sender: FDA-Public Use
  Company Number: US-SANOFI-AVENTIS-2010SA027584

PATIENT
  Age: 48 Year
  Sex: Male
  Weight: 66 kg

DRUGS (2)
  1. LANTUS [Suspect]
     Indication: TYPE 1 DIABETES MELLITUS
     Dosage: DOSE:20 UNIT(S)
     Route: 058
  2. NOVOLOG [Concomitant]

REACTIONS (9)
  - BLOOD GLUCOSE INCREASED [None]
  - DIARRHOEA [None]
  - EXPIRED DRUG ADMINISTERED [None]
  - HYPERSOMNIA [None]
  - INJECTION SITE PAIN [None]
  - PAIN [None]
  - PAIN IN EXTREMITY [None]
  - TESTICULAR PAIN [None]
  - WEIGHT DECREASED [None]
